FAERS Safety Report 5514402-3 (Version None)
Quarter: 2007Q4

REPORT INFORMATION
  Report Type: 
  Country: None (occurrence: None)
  Receive Date: 20071113
  Receipt Date: 20070723
  Transmission Date: 20080405
  Serious: Yes (Hospitalization)
  Sender: FDA-Public Use
  Company Number: A0650616A

PATIENT
  Age: 60 Year
  Sex: Female

DRUGS (2)
  1. COREG [Suspect]
     Indication: HYPERTENSION
     Dosage: 6.25MG TWICE PER DAY
     Route: 048
     Dates: start: 20061026
  2. LASIX [Concomitant]

REACTIONS (3)
  - DIZZINESS [None]
  - PULMONARY CONGESTION [None]
  - VISION BLURRED [None]
